FAERS Safety Report 7113552-8 (Version None)
Quarter: 2010Q4

REPORT INFORMATION
  Report Type: 
  Country: None (occurrence: None)
  Receive Date: 20101119
  Receipt Date: 20101104
  Transmission Date: 20110411
  Serious: No
  Sender: FDA-Public Use
  Company Number: US-PFIZER INC-2009222134

PATIENT
  Sex: Male

DRUGS (2)
  1. NORPACE [Suspect]
     Indication: ATRIAL FIBRILLATION
     Dosage: 150 MG, UNK
  2. DISOPYRAMIDE PHOSPHATE [Suspect]
     Indication: ATRIAL FIBRILLATION
     Dosage: 2 DF, 2X/DAY
     Route: 048

REACTIONS (4)
  - ATRIAL FIBRILLATION [None]
  - DRUG INEFFECTIVE [None]
  - GOUT [None]
  - PRODUCT SUBSTITUTION ISSUE [None]
